FAERS Safety Report 4557211-4 (Version None)
Quarter: 2005Q1

REPORT INFORMATION
  Report Type: 
  Country: None (occurrence: None)
  Receive Date: 20050118
  Receipt Date: 20050104
  Transmission Date: 20050727
  Serious: No
  Sender: FDA-Public Use
  Company Number: 2004AP04955

PATIENT
  Age: 66 Year
  Sex: Male
  Weight: 54 kg

DRUGS (8)
  1. MEROPEN [Suspect]
     Indication: PANCREATITIS ACUTE
     Dosage: 0.5 G BID IVD
     Route: 042
     Dates: start: 20040628, end: 20040702
  2. FUTHAN [Concomitant]
  3. CEFAMEZIN [Concomitant]
  4. MICRALID [Concomitant]
  5. GASTER [Concomitant]
  6. HUMULIN R [Concomitant]
  7. OMEPRAL [Concomitant]
  8. CIPROXAN [Concomitant]

REACTIONS (7)
  - ALCOHOL WITHDRAWAL SYNDROME [None]
  - ANXIETY [None]
  - DELIRIUM [None]
  - HALLUCINATION, VISUAL [None]
  - INCOHERENT [None]
  - TREATMENT NONCOMPLIANCE [None]
  - WHEEZING [None]
